FAERS Safety Report 12154853 (Version 1)
Quarter: 2016Q1

REPORT INFORMATION
  Report Type: Spontaneous
  Country: US (occurrence: US)
  Receive Date: 20160307
  Receipt Date: 20160307
  Transmission Date: 20160526
  Serious: Yes (Other)
  Sender: FDA-Public Use
  Company Number: US-TEVA-640138USA

PATIENT
  Age: 44 Year
  Sex: Female

DRUGS (1)
  1. COPAXONE [Suspect]
     Active Substance: GLATIRAMER ACETATE
     Route: 058
     Dates: start: 20140304

REACTIONS (4)
  - Paraesthesia [Unknown]
  - Balance disorder [Unknown]
  - Multiple sclerosis relapse [Unknown]
  - Nausea [Unknown]

NARRATIVE: CASE EVENT DATE: 201602
